FAERS Safety Report 13762637 (Version 3)
Quarter: 2017Q3

REPORT INFORMATION
  Report Type: Report from Study
  Country: US (occurrence: US)
  Receive Date: 20170718
  Receipt Date: 20170915
  Transmission Date: 20171127
  Serious: Yes (Other)
  Sender: FDA-Public Use
  Company Number: US-AMGEN-USASL2017104998

PATIENT
  Age: 58 Year
  Sex: Female

DRUGS (1)
  1. ENBREL [Suspect]
     Active Substance: ETANERCEPT
     Indication: RHEUMATOID ARTHRITIS
     Dosage: 50 MG, QWK
     Route: 065

REACTIONS (9)
  - Musculoskeletal disorder [Unknown]
  - Diarrhoea [Not Recovered/Not Resolved]
  - Pain in extremity [Unknown]
  - Injection site bruising [Recovered/Resolved]
  - Gastrointestinal disorder [Recovered/Resolved]
  - Injection site pruritus [Recovered/Resolved]
  - Stress [Unknown]
  - Drug effect decreased [Unknown]
  - Colitis [Unknown]

NARRATIVE: CASE EVENT DATE: 2017
